FAERS Safety Report 12592488 (Version 1)
Quarter: 2016Q3

REPORT INFORMATION
  Report Type: Spontaneous
  Country: US (occurrence: US)
  Receive Date: 20160726
  Receipt Date: 20160726
  Transmission Date: 20161109
  Serious: No
  Sender: FDA-Public Use
  Company Number: US-TRIS PHARMA, INC.-1055550

PATIENT
  Age: 16 Year
  Sex: Female

DRUGS (1)
  1. KARBINAL ER [Suspect]
     Active Substance: CARBINOXAMINE MALEATE
     Route: 048
     Dates: start: 201604, end: 201604

REACTIONS (2)
  - Hypersensitivity [None]
  - Vision blurred [None]

NARRATIVE: CASE EVENT DATE: 20160429
